FAERS Safety Report 18447420 (Version 1)
Quarter: 2020Q4

REPORT INFORMATION
  Report Type: Spontaneous
  Country: US (occurrence: US)
  Receive Date: 20201101
  Receipt Date: 20201101
  Transmission Date: 20210114
  Serious: Yes (Other)
  Sender: FDA-Public Use
  Company Number: US-NAPPMUNDI-USA-2020-0154429

PATIENT
  Sex: Male

DRUGS (2)
  1. OXYCONTIN [Suspect]
     Active Substance: OXYCODONE HYDROCHLORIDE
     Dosage: UNK UNK, PRN
     Route: 048
     Dates: start: 2011, end: 2016
  2. OXYCONTIN [Suspect]
     Active Substance: OXYCODONE HYDROCHLORIDE
     Indication: PRODUCT USED FOR UNKNOWN INDICATION
     Dosage: UNK UNK, TID ONCE OR TWICE
     Route: 048
     Dates: start: 2011, end: 2016

REACTIONS (5)
  - Illness [Unknown]
  - Somnolence [Unknown]
  - Drug dependence [Unknown]
  - Impaired work ability [Recovered/Resolved]
  - Impaired driving ability [Recovered/Resolved]
